FAERS Safety Report 6849843-5 (Version None)
Quarter: 2010Q3

REPORT INFORMATION
  Report Type: 
  Country: None (occurrence: None)
  Receive Date: 20100716
  Receipt Date: 20071007
  Transmission Date: 20110219
  Serious: No
  Sender: FDA-Public Use
  Company Number: US-PFIZER INC-2007085745

PATIENT
  Sex: Female
  Weight: 54.4 kg

DRUGS (5)
  1. CHANTIX [Suspect]
     Indication: SMOKING CESSATION THERAPY
     Dates: start: 20071006
  2. PERCOCET [Concomitant]
  3. MS CONTIN [Concomitant]
  4. LUNESTA [Concomitant]
     Indication: INSOMNIA
  5. PROMETHAZINE [Concomitant]
     Indication: MIGRAINE

REACTIONS (2)
  - ABDOMINAL PAIN [None]
  - NAUSEA [None]
